FAERS Safety Report 6694343-9 (Version None)
Quarter: 2010Q2

REPORT INFORMATION
  Report Type: 
  Country: None (occurrence: None)
  Receive Date: 20100423
  Receipt Date: 20100415
  Transmission Date: 20101027
  Serious: Yes (Other)
  Sender: FDA-Public Use
  Company Number: DK-PFIZER INC-2010047471

PATIENT
  Age: 5 Year
  Sex: Female
  Weight: 19 kg

DRUGS (2)
  1. PRO-EPANUTIN [Suspect]
     Indication: CONVULSION
     Dosage: UNK
     Dates: start: 20090908, end: 20090908
  2. VALPROATE SODIUM [Concomitant]
     Indication: CONVULSION
     Dosage: UNK
     Dates: start: 20090908

REACTIONS (2)
  - DYSTONIA [None]
  - PARTIAL SEIZURES [None]
